FAERS Safety Report 13625639 (Version 2)
Quarter: 2017Q2

REPORT INFORMATION
  Report Type: Spontaneous
  Country: MX (occurrence: MX)
  Receive Date: 20170607
  Receipt Date: 20170609
  Transmission Date: 20170830
  Serious: Yes (Other)
  Sender: FDA-Public Use
  Company Number: MX-PFIZER INC-2017243672

PATIENT
  Age: 85 Year
  Sex: Male

DRUGS (2)
  1. SERMION [Suspect]
     Active Substance: NICERGOLINE
     Dosage: 10 MG, UNK
  2. LIPITOR [Suspect]
     Active Substance: ATORVASTATIN CALCIUM
     Dosage: 40 MG, UNK

REACTIONS (2)
  - Deafness [Not Recovered/Not Resolved]
  - Intentional product misuse [Not Recovered/Not Resolved]
